FAERS Safety Report 9719294 (Version 3)
Quarter: 2014Q1

REPORT INFORMATION
  Report Type: Report from Study
  Country: NL (occurrence: NL)
  Receive Date: 20131127
  Receipt Date: 20140123
  Transmission Date: 20141002
  Serious: Yes (Death, Other)
  Sender: FDA-Public Use
  Company Number: PHHY2013NL129566

PATIENT
  Age: 69 Year
  Sex: Male

DRUGS (11)
  1. ZOMETA [Suspect]
     Indication: PROSTATE CANCER METASTATIC
     Dosage: 4 MG/100ML, ONCE EVERY 6 WEEKS
     Route: 042
  2. ZOMETA [Suspect]
     Dosage: 4 MG/100ML, ONCE EVERY 6 WEEKS
     Route: 042
     Dates: start: 20121008
  3. ZOMETA [Suspect]
     Dosage: 4 MG/100ML, ONCE EVERY 6 WEEKS
     Route: 042
     Dates: start: 20130919
  4. ZOMETA [Suspect]
     Dosage: 4 MG/100ML, ONCE EVERY 6 WEEKS
     Route: 042
     Dates: start: 20131112
  5. FENTANYL [Concomitant]
     Dosage: 200 MG
  6. ZOLADEX [Concomitant]
     Dosage: UNK UKN, UNK
  7. OXYNORM [Concomitant]
     Dosage: UNK UKN, UNK
  8. PANTOPRAZOLE [Concomitant]
     Dosage: UNK UKN, UNK
  9. PCM [Concomitant]
     Dosage: UNK UKN, UNK
  10. PREDNISOLONE [Concomitant]
     Dosage: UNK UKN, UNK
  11. NAPROXEN [Concomitant]
     Dosage: UNK UKN, UNK

REACTIONS (3)
  - Prostate cancer metastatic [Fatal]
  - Malignant neoplasm progression [Fatal]
  - General physical health deterioration [Unknown]
